FAERS Safety Report 7129545-0 (Version None)
Quarter: 2010Q4

REPORT INFORMATION
  Report Type: 
  Country: None (occurrence: None)
  Receive Date: 20101130
  Receipt Date: 20101119
  Transmission Date: 20110411
  Serious: Yes (Other)
  Sender: FDA-Public Use
  Company Number: US-PFIZER INC-2010137122

PATIENT
  Sex: Male
  Weight: 104.31 kg

DRUGS (7)
  1. VIAGRA [Suspect]
     Indication: ERECTILE DYSFUNCTION
     Dosage: 100 MG, AS NEEDED
     Route: 048
     Dates: start: 20050101, end: 20091103
  2. VIAGRA [Suspect]
     Dosage: 100 MG, AS NEEDED
     Route: 048
     Dates: start: 20091104, end: 20100801
  3. CHANTIX [Suspect]
     Indication: SMOKING CESSATION THERAPY
     Dosage: UNK
     Route: 048
     Dates: start: 20080101, end: 20080101
  4. LITHIUM [Concomitant]
     Dosage: UNK
  5. LEXAPRO [Concomitant]
     Indication: AFFECTIVE DISORDER
     Dosage: UNK
  6. SEROQUEL [Concomitant]
     Dosage: UNK
  7. ZOLOFT [Concomitant]
     Indication: AFFECTIVE DISORDER

REACTIONS (3)
  - BLOOD TESTOSTERONE DECREASED [None]
  - BLOOD TESTOSTERONE INCREASED [None]
  - SLEEP APNOEA SYNDROME [None]
